FAERS Safety Report 7745412-3 (Version None)
Quarter: 2011Q3

REPORT INFORMATION
  Report Type: 
  Country: None (occurrence: None)
  Receive Date: 20110913
  Receipt Date: 20110907
  Transmission Date: 20111222
  Serious: Yes (Hospitalization, Other)
  Sender: FDA-Public Use
  Company Number: CA-AMGEN-CANSP2011041255

PATIENT
  Sex: Female
  Weight: 119 kg

DRUGS (7)
  1. DEXAMETHASONE [Concomitant]
     Dosage: 10 MG, ONE TIME DOSE
     Route: 048
     Dates: start: 20110812, end: 20110812
  2. HYDROMORPHONE HCL [Concomitant]
     Indication: PAIN
     Dosage: 1 MG, PRN
     Route: 048
  3. LEVEMIR [Concomitant]
     Indication: DIABETES MELLITUS
     Dosage: 8 UNIT, QHS
     Route: 058
  4. GABAPENTIN [Concomitant]
     Indication: NEURALGIA
     Dosage: 300 MG, TID
     Route: 048
  5. NABILONE [Concomitant]
     Indication: NAUSEA
     Dosage: 0.5 MG, BID
     Route: 048
     Dates: start: 20110501
  6. GRANISETRON [Concomitant]
     Dosage: 2 MG, ONE TIME DOSE
     Route: 048
     Dates: start: 20110812, end: 20110812
  7. NEUPOGEN [Suspect]
     Indication: HAEMATOPOIETIC STEM CELL MOBILISATION
     Dosage: 10 MUG/KG, QD
     Route: 058
     Dates: start: 20110811, end: 20110812

REACTIONS (8)
  - HYPERHIDROSIS [None]
  - TACHYPNOEA [None]
  - TACHYCARDIA [None]
  - NAUSEA [None]
  - HYPERSENSITIVITY [None]
  - DIZZINESS [None]
  - HYPOTENSION [None]
  - VOMITING [None]
